FAERS Safety Report 5946821-5 (Version None)
Quarter: 2008Q4

REPORT INFORMATION
  Report Type: 
  Country: None (occurrence: None)
  Receive Date: 20081107
  Receipt Date: 20081107
  Transmission Date: 20090506
  Serious: Yes (Life-Threatening)
  Sender: FDA-Public Use
  Company Number: None

PATIENT
  Sex: Male
  Weight: 66.8 kg

DRUGS (2)
  1. NAFCILLIN SODIUM [Suspect]
     Indication: ARTHRITIS BACTERIAL
     Dosage: 2 GM Q4H IV
     Route: 042
     Dates: start: 20080907, end: 20080926
  2. NAFCILLIN SODIUM [Suspect]
     Indication: OSTEOMYELITIS
     Dosage: 2 GM Q4H IV
     Route: 042
     Dates: start: 20080907, end: 20080926

REACTIONS (1)
  - NEUTROPENIA [None]
